FAERS Safety Report 11257912 (Version 3)
Quarter: 2015Q3

REPORT INFORMATION
  Report Type: Report from Study
  Country: DE (occurrence: DE)
  Receive Date: 20150710
  Receipt Date: 20150728
  Transmission Date: 20151125
  Serious: Yes (Hospitalization, Other)
  Sender: FDA-Public Use
  Company Number: DE-BEH-2015052321

PATIENT
  Age: 73 Year
  Sex: Female
  Weight: 70 kg

DRUGS (12)
  1. RANITIDIN [Concomitant]
     Active Substance: RANITIDINE HYDROCHLORIDE
     Indication: PREMEDICATION
     Route: 042
     Dates: start: 20150528, end: 20150528
  2. PRIVIGEN [Suspect]
     Active Substance: HUMAN IMMUNOGLOBULIN G
     Indication: SECONDARY IMMUNODEFICIENCY
     Dosage: INFUSION RATE: 0.8 ML/MIN
     Route: 042
     Dates: start: 20150415, end: 20150415
  3. ASPIRIN. [Concomitant]
     Active Substance: ASPIRIN
  4. FENISTIL [Concomitant]
     Active Substance: DIMETHINDENE
     Indication: PREMEDICATION
     Dosage: VIAL
     Route: 042
     Dates: start: 20150528, end: 20150528
  5. ALLOPURINOL. [Concomitant]
     Active Substance: ALLOPURINOL
  6. FENISTIL [Concomitant]
     Active Substance: DIMETHINDENE
     Dosage: VIAL
     Route: 042
     Dates: start: 20150415, end: 20150415
  7. NEBIVOLOL. [Concomitant]
     Active Substance: NEBIVOLOL
  8. RANITIDIN [Concomitant]
     Active Substance: RANITIDINE HYDROCHLORIDE
     Route: 042
     Dates: start: 20150415, end: 20150415
  9. PRIVIGEN [Suspect]
     Active Substance: HUMAN IMMUNOGLOBULIN G
     Dosage: INFUSION RATE: 0.8 ML/MIN
     Route: 042
     Dates: start: 20150528, end: 20150528
  10. RAMIPRIL. [Concomitant]
     Active Substance: RAMIPRIL
     Indication: CARDIAC FAILURE
     Route: 048
  11. TORASEMID [Concomitant]
     Active Substance: TORSEMIDE
     Indication: CARDIAC FAILURE
     Route: 048
  12. BROTIZOLAM [Concomitant]
     Active Substance: BROTIZOLAM

REACTIONS (2)
  - Supraventricular tachycardia [Recovered/Resolved]
  - Salmonellosis [Unknown]

NARRATIVE: CASE EVENT DATE: 20150421
